FAERS Safety Report 23797280 (Version 2)
Quarter: 2024Q2

REPORT INFORMATION
  Report Type: Spontaneous
  Country: US (occurrence: US)
  Receive Date: 20240430
  Receipt Date: 20240506
  Transmission Date: 20240716
  Serious: No
  Sender: FDA-Public Use
  Company Number: US-ABBVIE-5736603

PATIENT
  Sex: Female

DRUGS (2)
  1. BOTOX COSMETIC [Suspect]
     Active Substance: ONABOTULINUMTOXINA
     Indication: Muscle hypertrophy
     Dosage: TIME INTERVAL: AS NECESSARY: 60 UNIT
     Route: 065
     Dates: start: 20240318, end: 20240318
  2. BOTOX COSMETIC [Suspect]
     Active Substance: ONABOTULINUMTOXINA
     Indication: Muscle hypertrophy
     Dosage: TIME INTERVAL: AS NECESSARY: 20 UNITS EACH SIDE, THEN 10 UNIT EACH SIDE, THEN 5 UNIT
     Route: 065

REACTIONS (4)
  - Paradoxical masseter muscle bulging [Recovered/Resolved]
  - Headache [Unknown]
  - Facial paresis [Unknown]
  - Pain [Recovered/Resolved]

NARRATIVE: CASE EVENT DATE: 20240320
